FAERS Safety Report 20973653 (Version 1)
Quarter: 2022Q2

REPORT INFORMATION
  Report Type: Spontaneous
  Country: GB (occurrence: GB)
  Receive Date: 20220617
  Receipt Date: 20220617
  Transmission Date: 20220721
  Serious: Yes (Other)
  Sender: FDA-Public Use
  Company Number: None

PATIENT
  Sex: Female

DRUGS (1)
  1. SAXENDA [Suspect]
     Active Substance: LIRAGLUTIDE
     Indication: Weight control
     Dosage: 0.6 MG, QD (AT NIGHT)
     Route: 065
     Dates: start: 20220607, end: 20220607

REACTIONS (1)
  - Loss of consciousness [Unknown]

NARRATIVE: CASE EVENT DATE: 20220607
